FAERS Safety Report 4591051-5 (Version None)
Quarter: 2005Q1

REPORT INFORMATION
  Report Type: 
  Country: None (occurrence: None)
  Receive Date: 20050222
  Receipt Date: 20050222
  Transmission Date: 20050727
  Serious: Yes (Hospitalization)
  Sender: FDA-Public Use
  Company Number: None

PATIENT
  Age: 35 Year
  Sex: Male
  Weight: 81.6475 kg

DRUGS (3)
  1. ZOLOFT [Suspect]
     Indication: ANXIETY
     Dosage: 25 MG  DAILY
     Dates: start: 20040818, end: 20040822
  2. ZOLOFT [Suspect]
     Indication: DEPRESSION
     Dosage: 25 MG  DAILY
     Dates: start: 20040818, end: 20040822
  3. ZOLOFT [Suspect]
     Indication: OBSESSIVE-COMPULSIVE DISORDER
     Dosage: 25 MG  DAILY
     Dates: start: 20040818, end: 20040822

REACTIONS (4)
  - ANOREXIA [None]
  - DRY MOUTH [None]
  - NOCTURNAL DYSPNOEA [None]
  - SEXUAL DYSFUNCTION [None]
